FAERS Safety Report 17786983 (Version 1)
Quarter: 2020Q2

REPORT INFORMATION
  Report Type: Report from Study
  Country: ES (occurrence: ES)
  Receive Date: 20200514
  Receipt Date: 20200514
  Transmission Date: 20200714
  Serious: Yes (Hospitalization)
  Sender: FDA-Public Use
  Company Number: ES-TEVA-2020-ES-1233666

PATIENT
  Age: 36 Year
  Sex: Female

DRUGS (3)
  1. OP2011 - OMEGA-3+DHA+EPA (DIET?TICO) [Suspect]
     Active Substance: DOCONEXENT\ICOSAPENT\OMEGA-3 FATTY ACIDS
     Indication: PREGNANCY
     Route: 048
     Dates: start: 201605, end: 201611
  2. ACETILSALICILICO ACIDO (176A) [Concomitant]
     Active Substance: ASPIRIN
     Dosage: 100 MG
     Route: 048
     Dates: start: 201608, end: 201611
  3. VIITAMINAS [Suspect]
     Active Substance: VITAMINS
     Indication: PREGNANCY
     Dosage: 2 DOSAGE FORMS
     Route: 048
     Dates: start: 201605, end: 201611

REACTIONS (1)
  - Hepatitis [Recovered/Resolved]

NARRATIVE: CASE EVENT DATE: 20161024
